FAERS Safety Report 16989062 (Version 1)
Quarter: 2019Q4

REPORT INFORMATION
  Report Type: Spontaneous
  Country: DE (occurrence: DE)
  Receive Date: 20191104
  Receipt Date: 20191104
  Transmission Date: 20200122
  Serious: Yes (Other)
  Sender: FDA-Public Use
  Company Number: DE-GLAXOSMITHKLINE-DE2019198259

PATIENT
  Age: 74 Year
  Sex: Male

DRUGS (4)
  1. RAMILICH [Concomitant]
     Active Substance: RAMIPRIL
     Indication: HYPERTENSION
     Dosage: TAKING FOR YEARS
     Route: 048
  2. ATORVASTATIN [Concomitant]
     Active Substance: ATORVASTATIN
     Indication: HYPERCHOLESTEROLAEMIA
     Dosage: 0-0-1 TAKING FOR YEARS
     Route: 048
  3. DESMOPRESSIN DIACETATE [Concomitant]
     Indication: NOCTURIA
     Dosage: 0-0-0-1
     Route: 048
     Dates: start: 20190726
  4. DUODART [Suspect]
     Active Substance: DUTASTERIDE\TAMSULOSIN
     Indication: PROSTATIC DISORDER
     Dosage: 1-0-0
     Route: 048
     Dates: start: 20190726

REACTIONS (3)
  - Cardiac discomfort [Recovered/Resolved]
  - Dizziness [Recovered/Resolved]
  - Blood pressure increased [Recovered/Resolved]

NARRATIVE: CASE EVENT DATE: 20190803
